FAERS Safety Report 20942537 (Version 1)
Quarter: 2022Q2

REPORT INFORMATION
  Report Type: Report from Study
  Country: CL (occurrence: None)
  Receive Date: 20220610
  Receipt Date: 20220610
  Transmission Date: 20220721
  Serious: Yes (Hospitalization)
  Sender: FDA-Public Use
  Company Number: CL-ROCHE-3113120

PATIENT
  Age: 70 Year
  Sex: Male
  Weight: 85 kg

DRUGS (8)
  1. ATEZOLIZUMAB [Suspect]
     Active Substance: ATEZOLIZUMAB
     Indication: Hormone-refractory prostate cancer
     Route: 041
     Dates: start: 20220513
  2. CABOZANTINIB [Suspect]
     Active Substance: CABOZANTINIB
     Indication: Hormone-refractory prostate cancer
     Route: 048
     Dates: start: 20220513, end: 20220523
  3. ATORVASTATIN [Concomitant]
     Active Substance: ATORVASTATIN
  4. TAPENTADOL [Concomitant]
     Active Substance: TAPENTADOL
  5. VALSARTAN [Concomitant]
     Active Substance: VALSARTAN
  6. BISOPROLOL [Concomitant]
     Active Substance: BISOPROLOL
  7. ACETAMINOPHEN [Concomitant]
     Active Substance: ACETAMINOPHEN
  8. METFORMIN [Concomitant]
     Active Substance: METFORMIN HYDROCHLORIDE

REACTIONS (2)
  - Pyrexia [Recovering/Resolving]
  - Malignant neoplasm progression [Recovering/Resolving]

NARRATIVE: CASE EVENT DATE: 20220524
